FAERS Safety Report 15557182 (Version 4)
Quarter: 2019Q1

REPORT INFORMATION
  Report Type: Report from Study
  Country: US (occurrence: US)
  Receive Date: 20181026
  Receipt Date: 20190110
  Transmission Date: 20190417
  Serious: Yes (Hospitalization)
  Sender: FDA-Public Use
  Company Number: US-ACTELION-A-US2018-180666

PATIENT
  Age: 51 Year
  Sex: Female
  Weight: 66.67 kg

DRUGS (9)
  1. UPTRAVI [Suspect]
     Active Substance: SELEXIPAG
     Indication: PULMONARY ARTERIAL HYPERTENSION
     Dosage: 600 MCG, BID
     Route: 048
  2. REMODULIN [Suspect]
     Active Substance: TREPROSTINIL
     Dosage: UNK
     Route: 042
  3. UPTRAVI [Suspect]
     Active Substance: SELEXIPAG
     Dosage: 200 MCG, BID
     Route: 048
  4. UPTRAVI [Suspect]
     Active Substance: SELEXIPAG
     Dosage: 1600 MCG, BID
     Route: 048
  5. UPTRAVI [Suspect]
     Active Substance: SELEXIPAG
     Dosage: 1200 MCG, BID
     Route: 048
  6. REMODULIN [Suspect]
     Active Substance: TREPROSTINIL
     Indication: PULMONARY HYPERTENSION
     Dosage: 48 NG/KG, PER MIN
     Route: 042
     Dates: start: 20171127
  7. REMODULIN [Suspect]
     Active Substance: TREPROSTINIL
     Dosage: 44 NG/KG, PER MIN
     Route: 042
  8. UPTRAVI [Suspect]
     Active Substance: SELEXIPAG
     Dosage: 1400 MCG, BID
     Route: 048
  9. REMODULIN [Suspect]
     Active Substance: TREPROSTINIL
     Dosage: 40 NG/KG, PER MIN
     Route: 042

REACTIONS (7)
  - Fatigue [Unknown]
  - Device breakage [Unknown]
  - Device leakage [Unknown]
  - Dizziness [Unknown]
  - Catheter management [Unknown]
  - Therapy change [Unknown]
  - Diarrhoea [Unknown]
